FAERS Safety Report 5550434-7 (Version None)
Quarter: 2007Q4

REPORT INFORMATION
  Report Type: 
  Country: None (occurrence: None)
  Receive Date: 20071212
  Receipt Date: 20070502
  Transmission Date: 20080405
  Serious: No
  Sender: FDA-Public Use
  Company Number: US-AMGEN-KDL215410

PATIENT
  Sex: Female
  Weight: 95.3 kg

DRUGS (7)
  1. ENBREL [Suspect]
     Indication: PSORIATIC ARTHROPATHY
     Route: 058
     Dates: start: 20040801, end: 20070308
  2. ENBREL [Suspect]
     Indication: PSORIASIS
  3. PREDNISONE [Suspect]
  4. ALEVE [Concomitant]
  5. ZYRTEC [Concomitant]
  6. LEVOXYL [Concomitant]
  7. LISINOPRIL [Concomitant]

REACTIONS (3)
  - DRUG INEFFECTIVE [None]
  - FUNGAL INFECTION [None]
  - VULVOVAGINITIS [None]
